FAERS Safety Report 4822016-3 (Version None)
Quarter: 2005Q4

REPORT INFORMATION
  Report Type: 
  Country: None (occurrence: None)
  Receive Date: 20051107
  Receipt Date: 20051027
  Transmission Date: 20060501
  Serious: Yes (Hospitalization)
  Sender: FDA-Public Use
  Company Number: JP-JNJFOC-20051002226

PATIENT
  Age: 84 Year
  Sex: Female

DRUGS (1)
  1. FENTANYL CITRATE [Suspect]
     Indication: ARTHRALGIA
     Route: 062

REACTIONS (9)
  - DEPRESSED LEVEL OF CONSCIOUSNESS [None]
  - DRUG ADMINISTRATION ERROR [None]
  - EXTRAPYRAMIDAL DISORDER [None]
  - HYPOXIA [None]
  - NARCOTIC INTOXICATION [None]
  - NERVE INJURY [None]
  - PERSONALITY CHANGE DUE TO A GENERAL MEDICAL CONDITION [None]
  - POVERTY OF SPEECH [None]
  - SELF-MEDICATION [None]
